FAERS Safety Report 4520351-X (Version None)
Quarter: 2004Q4

REPORT INFORMATION
  Report Type: 
  Country: None (occurrence: None)
  Receive Date: 20041207
  Receipt Date: 20041130
  Transmission Date: 20050328
  Serious: Yes (Other)
  Sender: FDA-Public Use
  Company Number: SE-GLAXOSMITHKLINE-B0359147A

PATIENT
  Sex: Male

DRUGS (1)
  1. SEROXAT [Suspect]
     Route: 065
     Dates: end: 20041125

REACTIONS (5)
  - DRUG WITHDRAWAL SYNDROME [None]
  - LOSS OF CONSCIOUSNESS [None]
  - PARAESTHESIA [None]
  - SHOCK [None]
  - SYNCOPE [None]
